FAERS Safety Report 6460234-1 (Version None)
Quarter: 2009Q4

REPORT INFORMATION
  Report Type: 
  Country: None (occurrence: None)
  Receive Date: 20091130
  Receipt Date: 20091119
  Transmission Date: 20100525
  Serious: Yes (Hospitalization)
  Sender: FDA-Public Use
  Company Number: LK-RANBAXY-2009RR-29373

PATIENT
  Age: 23 Year
  Sex: Female
  Weight: 42 kg

DRUGS (1)
  1. PARACETAMOL [Suspect]
     Dosage: 6 G, UNK
     Route: 048

REACTIONS (2)
  - LIVER INJURY [None]
  - OVERDOSE [None]
